FAERS Safety Report 6243697-6 (Version None)
Quarter: 2009Q2

REPORT INFORMATION
  Report Type: 
  Country: None (occurrence: None)
  Receive Date: 20090624
  Receipt Date: 20090612
  Transmission Date: 20091009
  Serious: Yes (Other)
  Sender: FDA-Public Use
  Company Number: GB-PFIZER INC-2009204301

PATIENT

DRUGS (2)
  1. CHAMPIX [Suspect]
  2. LIPITOR [Suspect]

REACTIONS (3)
  - ANXIETY [None]
  - NAUSEA [None]
  - TREMOR [None]
